FAERS Safety Report 7780777-8 (Version None)
Quarter: 2011Q3

REPORT INFORMATION
  Report Type: 
  Country: None (occurrence: None)
  Receive Date: 20110927
  Receipt Date: 20110922
  Transmission Date: 20111222
  Serious: No
  Sender: FDA-Public Use
  Company Number: US-PFIZER INC-2011225884

PATIENT
  Age: 63 Year
  Sex: Male

DRUGS (15)
  1. LOVAZA [Concomitant]
     Dosage: 500 MG, 1X/DAY
     Dates: start: 20110301
  2. ZETIA [Concomitant]
     Dosage: UNK
  3. NICOTINIC ACID [Concomitant]
     Indication: PROPHYLAXIS
     Dosage: 500 MG, 1 IN 1 D
     Dates: start: 20050101
  4. FISH OIL [Concomitant]
     Dosage: UNK
     Dates: start: 20090101, end: 20110301
  5. LIPITOR [Suspect]
     Dosage: UNK
     Dates: start: 20050101, end: 20090101
  6. CARVEDILOL [Concomitant]
     Indication: PROPHYLAXIS
     Dosage: 25 MG, 2X/DAY
     Dates: start: 20050101
  7. ACETYLSALICYLIC ACID [Concomitant]
     Indication: PROPHYLAXIS
     Dosage: UNK, 1 IN 1 D
     Dates: start: 20050101
  8. ROSUVASTATIN [Concomitant]
     Dosage: 10 MG, 1X/DAY
     Dates: start: 20090101
  9. CO-Q-10 [Concomitant]
     Dosage: 200 MG, 1X/DAY
     Dates: start: 20090101
  10. HUMIRA [Suspect]
     Indication: PSORIASIS
     Dosage: 40 MG, 1 IN 2 WK
     Dates: start: 20071201
  11. CRESTOR [Concomitant]
     Dosage: UNK
  12. RAMIPRIL [Concomitant]
     Indication: PROPHYLAXIS
     Dosage: 5 MG, 1X/DAY
     Dates: start: 20050101
  13. MULTI-VITAMINS [Concomitant]
     Indication: PROPHYLAXIS
     Dosage: UNK, 1 IN 1 D
     Dates: start: 20070101
  14. EZETIMIBE [Concomitant]
     Dosage: 10 MG, 1X/DAY
     Dates: start: 20090101
  15. FENOFIBRATE [Concomitant]
     Indication: BLOOD CHOLESTEROL INCREASED
     Dosage: 145 MG, 1X/DAY
     Dates: start: 20050101

REACTIONS (9)
  - SKIN EXFOLIATION [None]
  - ASTHENIA [None]
  - ERYTHEMA [None]
  - VITAMIN D DECREASED [None]
  - MUSCLE ATROPHY [None]
  - PAIN IN EXTREMITY [None]
  - MUSCULAR WEAKNESS [None]
  - DEPRESSION [None]
  - FATIGUE [None]
